FAERS Safety Report 13801621 (Version 4)
Quarter: 2018Q4

REPORT INFORMATION
  Report Type: Report from Study
  Country: US (occurrence: US)
  Receive Date: 20170727
  Receipt Date: 20181009
  Transmission Date: 20190204
  Serious: Yes (Hospitalization)
  Sender: FDA-Public Use
  Company Number: PHHO2017US008397

PATIENT
  Age: 62 Year
  Sex: Male
  Weight: 99.7 kg

DRUGS (10)
  1. PLACEBO [Suspect]
     Active Substance: UNSPECIFIED INGREDIENT
     Dosage: UNK
     Route: 048
     Dates: start: 20170518
  2. ALDACTONE [Suspect]
     Active Substance: SPIRONOLACTONE
     Indication: WEIGHT INCREASED
     Dosage: 50 MG, QD
     Route: 065
     Dates: start: 20170410
  3. ALDACTONE [Suspect]
     Active Substance: SPIRONOLACTONE
     Indication: SWELLING
  4. TORSEMIDE. [Suspect]
     Active Substance: TORSEMIDE
     Indication: WEIGHT INCREASED
     Dosage: 20 MG, QD
     Route: 065
  5. ENALAPRIL [Suspect]
     Active Substance: ENALAPRIL
     Indication: CARDIAC FAILURE ACUTE
     Dosage: UNK
     Route: 048
     Dates: start: 20170411, end: 20170516
  6. ENALAPRIL [Suspect]
     Active Substance: ENALAPRIL
     Dosage: UNK
     Route: 048
     Dates: start: 20170518
  7. SPIRONOLACTONE. [Suspect]
     Active Substance: SPIRONOLACTONE
     Indication: SWELLING
  8. SPIRONOLACTONE. [Suspect]
     Active Substance: SPIRONOLACTONE
     Indication: WEIGHT INCREASED
     Dosage: 50 MG, QD
     Route: 065
     Dates: start: 20170410
  9. PLACEBO [Suspect]
     Active Substance: UNSPECIFIED INGREDIENT
     Indication: CARDIAC FAILURE CHRONIC
     Dosage: UNK
     Route: 048
     Dates: start: 20170411, end: 20170516
  10. TORSEMIDE. [Suspect]
     Active Substance: TORSEMIDE
     Indication: SWELLING
     Dosage: 20 MG, PRN
     Route: 065

REACTIONS (1)
  - Hypovolaemia [Recovered/Resolved]

NARRATIVE: CASE EVENT DATE: 20170512
